FAERS Safety Report 12856696 (Version 2)
Quarter: 2016Q4

REPORT INFORMATION
  Report Type: Spontaneous
  Country: GB (occurrence: GB)
  Receive Date: 20161018
  Receipt Date: 20161018
  Transmission Date: 20170207
  Serious: Yes (Other)
  Sender: FDA-Public Use
  Company Number: GB-TEVA-697017ACC

PATIENT
  Sex: Female

DRUGS (1)
  1. OMEPRAZOLE. [Suspect]
     Active Substance: OMEPRAZOLE
     Indication: GASTROOESOPHAGEAL REFLUX DISEASE
     Route: 065

REACTIONS (6)
  - Abdominal distension [Recovering/Resolving]
  - Feeling abnormal [Recovering/Resolving]
  - Adverse event [Unknown]
  - Dyspepsia [Recovering/Resolving]
  - Functional gastrointestinal disorder [Recovering/Resolving]
  - Coeliac disease [Unknown]
